FAERS Safety Report 5237641-8 (Version None)
Quarter: 2007Q1

REPORT INFORMATION
  Report Type: 
  Country: None (occurrence: None)
  Receive Date: 20070214
  Receipt Date: 20070131
  Transmission Date: 20070707
  Serious: Yes (Hospitalization)
  Sender: FDA-Public Use
  Company Number: US-ELI_LILLY_AND_COMPANY-US200702000251

PATIENT
  Age: 85 Year
  Sex: Female

DRUGS (9)
  1. FORTEO [Suspect]
     Indication: OSTEOPOROSIS
  2. BENICAR [Concomitant]
     Indication: HYPERTENSION
     Dosage: 20 MG, UNK
  3. ZOLOFT [Concomitant]
     Indication: ANXIETY
     Dosage: 50 MG, UNK
  4. PREDNISONE [Concomitant]
     Indication: POLYMYALGIA RHEUMATICA
     Dosage: 8 MG, UNK
  5. PREDNISONE [Concomitant]
     Dosage: 10 MG, UNK
  6. CALCIUM WITH VITAMIN D [Concomitant]
     Dosage: 1800 MG, UNK
  7. ONE-A-DAY [Concomitant]
  8. ZOCOR [Concomitant]
     Indication: BLOOD CHOLESTEROL INCREASED
     Dosage: 40 MG, UNK
  9. AMBIEN [Concomitant]
     Indication: SLEEP DISORDER
     Dosage: 5 MG, AS NEEDED

REACTIONS (4)
  - CEREBROVASCULAR ACCIDENT [None]
  - MONOPLEGIA [None]
  - SLEEP DISORDER [None]
  - SPEECH DISORDER [None]
